FAERS Safety Report 7308387-7 (Version None)
Quarter: 2011Q1

REPORT INFORMATION
  Report Type: 
  Country: None (occurrence: None)
  Receive Date: 20110223
  Receipt Date: 20110128
  Transmission Date: 20110831
  Serious: No
  Sender: FDA-Public Use
  Company Number: US-B.I. PHARMACEUTICALS,INC./RIDGEFIELD-2010-BP-15167BP

PATIENT
  Sex: Female

DRUGS (8)
  1. ADVAIR HFA [Concomitant]
  2. METFORMIN [Concomitant]
  3. SPIRIVA [Suspect]
     Indication: CHRONIC OBSTRUCTIVE PULMONARY DISEASE
     Dosage: 18 MCG
     Route: 055
     Dates: start: 20100101
  4. LISINOPRIL [Concomitant]
  5. LASIX [Concomitant]
  6. SPIRIVA [Suspect]
     Indication: DYSPNOEA
  7. INHALATION AEROSOL [Concomitant]
  8. ATENOLOL [Concomitant]

REACTIONS (1)
  - DYSPNOEA [None]
